FAERS Safety Report 6746947-2 (Version None)
Quarter: 2010Q2

REPORT INFORMATION
  Report Type: 
  Country: None (occurrence: None)
  Receive Date: 20100528
  Receipt Date: 20090922
  Transmission Date: 20101027
  Serious: No
  Sender: FDA-Public Use
  Company Number: US-ASTRAZENECA-2009SE31595

PATIENT

DRUGS (3)
  1. PRILOSEC OTC [Suspect]
     Indication: PROPHYLAXIS
     Dosage: 1 TABLET, 1 ONLY
     Route: 048
     Dates: start: 20090922, end: 20090922
  2. MOBIC [Concomitant]
     Dosage: UNKNOWN
  3. HERBAL PREPARATION [Concomitant]
     Dosage: UNKNOWN

REACTIONS (6)
  - ABDOMINAL DISCOMFORT [None]
  - ABDOMINAL DISTENSION [None]
  - FEELING COLD [None]
  - FEELING HOT [None]
  - NAUSEA [None]
  - NERVOUSNESS [None]
